FAERS Safety Report 8903162 (Version 1)
Quarter: 2012Q4

REPORT INFORMATION
  Report Type: 
  Country: GB (occurrence: GB)
  Receive Date: 20121112
  Receipt Date: 20121112
  Transmission Date: 20130627
  Serious: Yes (Death)
  Sender: FDA-Public Use
  Company Number: GB-GENZYME-CLOF-1002114

PATIENT
  Age: 56 Year
  Sex: Female

DRUGS (7)
  1. EVOLTRA [Suspect]
     Indication: ACUTE MYELOID LEUKAEMIA
     Dosage: UNK
     Route: 065
     Dates: start: 20110823
  2. EVOLTRA [Suspect]
     Dosage: UNK
     Route: 065
     Dates: start: 20120222, end: 20120226
  3. DAUNORUBICIN [Suspect]
     Indication: ACUTE MYELOID LEUKAEMIA
     Dosage: UNK
     Route: 065
     Dates: start: 20110823
  4. DAUNORUBICIN [Suspect]
     Dosage: UNK
     Route: 065
     Dates: start: 20120222, end: 20120226
  5. ARA-C [Suspect]
     Indication: ACUTE MYELOID LEUKAEMIA
     Dosage: UNK
     Route: 065
     Dates: start: 20110823, end: 20120226
  6. MYLOTARG [Suspect]
     Indication: ACUTE MYELOID LEUKAEMIA
     Dosage: UNK
     Route: 065
     Dates: start: 20110823, end: 20120226
  7. ETOPOSIDE [Suspect]
     Indication: ACUTE MYELOID LEUKAEMIA
     Dosage: UNK
     Route: 065
     Dates: start: 20110823, end: 20120226

REACTIONS (2)
  - Acute myeloid leukaemia [Fatal]
  - Neutropenia [Fatal]
